FAERS Safety Report 7781573-8 (Version None)
Quarter: 2011Q3

REPORT INFORMATION
  Report Type: 
  Country: None (occurrence: None)
  Receive Date: 20110923
  Receipt Date: 20110907
  Transmission Date: 20111222
  Serious: Yes (Other)
  Sender: FDA-Public Use
  Company Number: 2011AP002005

PATIENT
  Age: 74 Year
  Sex: Female

DRUGS (15)
  1. AMITRIPTYLINE HYDROCHLORIDE [Concomitant]
  2. CETIRIZINE [Concomitant]
  3. ISPAGHULA HUSK /00029102/ (PLANTAGO OVATA HUSK) [Concomitant]
  4. FLUOROURACIL [Concomitant]
  5. ACETAMINOPHEN [Concomitant]
  6. RISEDRONATE SODIUM [Concomitant]
  7. SIMVASTATIN [Concomitant]
  8. INFLUENZA VIRUS (INFLUENZA VACCINE) [Concomitant]
  9. TRAMADOL HCL [Concomitant]
  10. RAMIPRIL [Suspect]
     Indication: PRODUCT USED FOR UNKNOWN INDICATION
  11. HYDROXOCOBALAMIN [Concomitant]
  12. DILTIAZEM HYDROCHLORIDE [Concomitant]
  13. ASPIRIN [Concomitant]
  14. LEVOTHYROXINE SODIUM [Concomitant]
  15. ALCLOMETASONE DIPROPIONATE (ALCLOMETASONE DIPROPIONATE) [Concomitant]

REACTIONS (1)
  - RESTLESSNESS [None]
